FAERS Safety Report 8568051-3 (Version None)
Quarter: 2012Q3

REPORT INFORMATION
  Report Type: 
  Country: None (occurrence: None)
  Receive Date: 20120803
  Receipt Date: 20110923
  Transmission Date: 20120928
  Serious: No
  Sender: FDA-Public Use
  Company Number: US-ABBOTT-11P-163-0857249-00

PATIENT
  Sex: Female
  Weight: 69.916 kg

DRUGS (5)
  1. NIASPAN [Suspect]
     Indication: LOW DENSITY LIPOPROTEIN INCREASED
     Dosage: AT BEDTIME
     Dates: start: 20110918, end: 20110920
  2. ASPIRIN [Concomitant]
     Indication: PRODUCT USED FOR UNKNOWN INDICATION
  3. SYNTHROID [Concomitant]
     Indication: PRODUCT USED FOR UNKNOWN INDICATION
  4. INSULIN [Concomitant]
     Indication: PRODUCT USED FOR UNKNOWN INDICATION
  5. NIASPAN [Suspect]
     Indication: BLOOD CHOLESTEROL INCREASED

REACTIONS (10)
  - PILOERECTION [None]
  - ERYTHEMA [None]
  - BLOOD GLUCOSE INCREASED [None]
  - SKIN BURNING SENSATION [None]
  - HOT FLUSH [None]
  - DIARRHOEA [None]
  - PARAESTHESIA [None]
  - PALPITATIONS [None]
  - PRURITUS [None]
  - FLUID RETENTION [None]
